FAERS Safety Report 14300282 (Version 1)
Quarter: 2017Q4

REPORT INFORMATION
  Report Type: Spontaneous
  Country: US (occurrence: US)
  Receive Date: 20171219
  Receipt Date: 20171219
  Transmission Date: 20180321
  Serious: No
  Sender: FDA-Public Use
  Company Number: US-TEVA-742421ACC

PATIENT
  Sex: Male

DRUGS (2)
  1. AZITHROMYCIN ANHYDROUS. [Suspect]
     Active Substance: AZITHROMYCIN ANHYDROUS
     Indication: INFECTION
     Dosage: TAKEN TWO TABLETS YESTERDAY AND ONE TODAY
     Dates: start: 20170216
  2. BAYER ASPIRIN [Concomitant]
     Active Substance: ASPIRIN
     Dosage: DOSE: 81 MG

REACTIONS (5)
  - Disorientation [Unknown]
  - Loss of personal independence in daily activities [Unknown]
  - Abdominal discomfort [Unknown]
  - Dysstasia [Unknown]
  - Dizziness [Unknown]
